FAERS Safety Report 8012444-X (Version None)
Quarter: 2011Q4

REPORT INFORMATION
  Report Type: 
  Country: None (occurrence: None)
  Receive Date: 20111228
  Receipt Date: 20111222
  Transmission Date: 20120403
  Serious: Yes (Hospitalization)
  Sender: FDA-Public Use
  Company Number: FI-ROCHE-1024329

PATIENT
  Sex: Male

DRUGS (3)
  1. MABTHERA [Suspect]
     Indication: WEGENER'S GRANULOMATOSIS
     Route: 042
     Dates: start: 20080901
  2. MYFORTIC [Concomitant]
     Indication: WEGENER'S GRANULOMATOSIS
  3. PREDNISOLONE [Concomitant]
     Indication: WEGENER'S GRANULOMATOSIS

REACTIONS (3)
  - LEUKOPENIA [None]
  - INFECTION [None]
  - NEUTROPENIA [None]
